FAERS Safety Report 4728576-5 (Version None)
Quarter: 2005Q3

REPORT INFORMATION
  Report Type: 
  Country: None (occurrence: None)
  Receive Date: 20050729
  Receipt Date: 20050715
  Transmission Date: 20060218
  Serious: Yes (Hospitalization)
  Sender: FDA-Public Use
  Company Number: US-BRISTOL-MYERS SQUIBB COMPANY-13040670

PATIENT
  Age: 87 Year
  Sex: Female

DRUGS (1)
  1. MAXIPIME [Suspect]
     Indication: PNEUMONIA
     Route: 030
     Dates: start: 20040418, end: 20040418

REACTIONS (2)
  - DEPRESSED LEVEL OF CONSCIOUSNESS [None]
  - LETHARGY [None]
